FAERS Safety Report 7947908-8 (Version None)
Quarter: 2011Q4

REPORT INFORMATION
  Report Type: 
  Country: None (occurrence: None)
  Receive Date: 20111125
  Receipt Date: 20111118
  Transmission Date: 20120403
  Serious: Yes (Hospitalization, Other)
  Sender: FDA-Public Use
  Company Number: JPI-P-018335

PATIENT
  Age: 37 Year
  Sex: Female
  Weight: 95.709 kg

DRUGS (8)
  1. SERTRALINE HYDROCHLORIDE [Concomitant]
  2. BUPROFEN [Concomitant]
  3. XYREM [Suspect]
     Indication: NARCOLEPSY
     Dosage: ORAL
     Route: 048
     Dates: start: 20100601
  4. AMPHETAMINE ASPARTATE [Concomitant]
  5. MILNACIPRAN HYDROCHLORIDE [Concomitant]
  6. PROCHLORPERAZINE [Concomitant]
  7. CLONAZEPAM [Concomitant]
  8. AMPHETAMINE ASPARTATE; AMPHETAMINE SULFATE; DEXTROAMPHETAMINE SACCHARA [Concomitant]

REACTIONS (2)
  - INTERVERTEBRAL DISC COMPRESSION [None]
  - ROAD TRAFFIC ACCIDENT [None]
